FAERS Safety Report 9557578 (Version 1)
Quarter: 2013Q3

REPORT INFORMATION
  Report Type: Spontaneous
  Country: US (occurrence: US)
  Receive Date: 20130926
  Receipt Date: 20130926
  Transmission Date: 20140515
  Serious: Yes (Other)
  Sender: FDA-Public Use
  Company Number: US-GLAXOSMITHKLINE-A0896551A

PATIENT
  Sex: Male
  Weight: 100 kg

DRUGS (1)
  1. AVANDIA [Suspect]
     Indication: DIABETES MELLITUS
     Dosage: 8MG PER DAY
     Route: 048
     Dates: start: 1999, end: 2006

REACTIONS (3)
  - Cardiac disorder [Unknown]
  - Cardiovascular disorder [Unknown]
  - Angina pectoris [Unknown]
